FAERS Safety Report 5081744-8 (Version None)
Quarter: 2006Q3

REPORT INFORMATION
  Report Type: 
  Country: None (occurrence: None)
  Receive Date: 20060816
  Receipt Date: 20060804
  Transmission Date: 20061208
  Serious: Yes (Hospitalization)
  Sender: FDA-Public Use
  Company Number: JP-SANOFI-SYNTHELABO-A01200606412

PATIENT
  Age: 85 Year
  Sex: Male

DRUGS (3)
  1. MYSLEE [Suspect]
     Indication: ACCIDENTAL OVERDOSE
     Route: 048
  2. MYSLEE [Suspect]
     Route: 048
  3. MYSLEE [Suspect]
     Route: 048
     Dates: start: 20060629, end: 20060629

REACTIONS (4)
  - ACCIDENTAL OVERDOSE [None]
  - CERVICAL VERTEBRAL FRACTURE [None]
  - DRUG DISPENSING ERROR [None]
  - FALL [None]
